FAERS Safety Report 7080950-0 (Version None)
Quarter: 2010Q4

REPORT INFORMATION
  Report Type: 
  Country: None (occurrence: None)
  Receive Date: 20101102
  Receipt Date: 20101102
  Transmission Date: 20110411
  Serious: No
  Sender: FDA-Public Use
  Company Number: None

PATIENT
  Age: 33 Year
  Sex: Female

DRUGS (2)
  1. PHENERGAN [Suspect]
     Indication: NAUSEA
     Dosage: 12.5MG ONCE IV
     Route: 042
     Dates: start: 20101001, end: 20101001
  2. MORPHINE [Suspect]
     Indication: PAIN
     Dosage: 4MG IV
     Route: 042
     Dates: start: 20101001, end: 20101001

REACTIONS (1)
  - URTICARIA [None]
